FAERS Safety Report 9449098 (Version 2)
Quarter: 2013Q3

REPORT INFORMATION
  Report Type: Spontaneous
  Country: US (occurrence: US)
  Receive Date: 20130808
  Receipt Date: 20130814
  Transmission Date: 20140515
  Serious: Yes (Disabling, Other)
  Sender: FDA-Public Use
  Company Number: CHPA2013US009550

PATIENT
  Age: 32 Year
  Sex: Female

DRUGS (1)
  1. TRANSDERM SCOP [Suspect]
     Indication: MOTION SICKNESS
     Dosage: 1 DF, UNK
     Route: 062
     Dates: end: 20130320

REACTIONS (17)
  - Punctate keratitis [Not Recovered/Not Resolved]
  - Cycloplegia [Recovered/Resolved]
  - Visual impairment [Recovering/Resolving]
  - Vision blurred [Recovering/Resolving]
  - Accommodation disorder [Recovering/Resolving]
  - Visual acuity reduced [Recovering/Resolving]
  - Photophobia [Recovering/Resolving]
  - Anxiety [Unknown]
  - Emotional distress [Unknown]
  - Eye pain [Recovering/Resolving]
  - Dry eye [Unknown]
  - Mydriasis [Not Recovered/Not Resolved]
  - Headache [Unknown]
  - Dizziness [Unknown]
  - Inappropriate schedule of drug administration [Unknown]
  - Underdose [Unknown]
  - Ocular hyperaemia [Recovering/Resolving]
